FAERS Safety Report 12624788 (Version 1)
Quarter: 2016Q3

REPORT INFORMATION
  Report Type: Spontaneous
  Country: US (occurrence: None)
  Receive Date: 20160804
  Receipt Date: 20160804
  Transmission Date: 20161109
  Serious: No
  Sender: FDA-Public Use
  Company Number: None

PATIENT
  Age: 26 Year
  Sex: Female
  Weight: 49.9 kg

DRUGS (1)
  1. LEVAFLOXICIN [Suspect]
     Active Substance: LEVOFLOXACIN
     Indication: MASTOIDITIS
     Route: 048
     Dates: start: 20160617, end: 20160630

REACTIONS (1)
  - Musculoskeletal pain [None]

NARRATIVE: CASE EVENT DATE: 20160718
